FAERS Safety Report 16014130 (Version 4)
Quarter: 2019Q2

REPORT INFORMATION
  Report Type: Report from Study
  Country: DE (occurrence: DE)
  Receive Date: 20190227
  Receipt Date: 20190401
  Transmission Date: 20190711
  Serious: Yes (Hospitalization, Other)
  Sender: FDA-Public Use
  Company Number: DE-AMGEN-DEUCT2019021494

PATIENT
  Age: 63 Year
  Sex: Female
  Weight: 80 kg

DRUGS (10)
  1. ELOTUZUMAB. [Suspect]
     Active Substance: ELOTUZUMAB
     Indication: PLASMA CELL MYELOMA
     Dosage: 10 MILLIGRAM/KILOGRAM, PER CHEMO REGIM
     Route: 042
  2. DEXAMETHASONE. [Suspect]
     Active Substance: DEXAMETHASONE
     Indication: PLASMA CELL MYELOMA
     Dosage: 40 MILLIGRAM, PER CHEMO REGIM
     Route: 048
  3. CLEXANE [Concomitant]
     Active Substance: ENOXAPARIN SODIUM
     Indication: THROMBOSIS PROPHYLAXIS
     Dosage: 60 MILLIGRAM, QD
     Route: 058
  4. DEXAMETHASONE. [Suspect]
     Active Substance: DEXAMETHASONE
     Dosage: 8 MILLIGRAM, PER CHEMO REGIM
     Route: 042
  5. COTRIM FORTE [Concomitant]
     Active Substance: SULFAMETHOXAZOLE\TRIMETHOPRIM
     Indication: INFECTION PROPHYLAXIS
     Dosage: 960 MILLIGRAM, 0-1-0(MONDAY, WEDNESDAY, AND FRIDAY)
     Route: 048
     Dates: start: 20181129
  6. LENALIDOMIDE [Suspect]
     Active Substance: LENALIDOMIDE
     Indication: PLASMA CELL MYELOMA
     Dosage: 75 MILLIGRAM, PER CHEMO REGIM
     Route: 048
  7. ACYCLOVIR. [Concomitant]
     Active Substance: ACYCLOVIR
     Indication: PROPHYLAXIS
     Dosage: 400 MILLIGRAM, QD
     Route: 048
     Dates: start: 20181129
  8. CARFILZOMIB [Suspect]
     Active Substance: CARFILZOMIB
     Indication: PLASMA CELL MYELOMA
     Dosage: 36 MILLIGRAM/SQ. METER, PER CHEMO REGIM
     Route: 042
  9. TAVANIC [Concomitant]
     Active Substance: LEVOFLOXACIN
     Indication: SUPERINFECTION BACTERIAL
     Dosage: 5000 MILLIGRAM, QD
     Route: 048
     Dates: start: 20190207, end: 20190208
  10. TAVANIC [Concomitant]
     Active Substance: LEVOFLOXACIN
     Indication: PNEUMONIA INFLUENZAL

REACTIONS (2)
  - Superinfection bacterial [Recovered/Resolved]
  - Pneumonia influenzal [Recovered/Resolved]

NARRATIVE: CASE EVENT DATE: 20190208
